FAERS Safety Report 6192144-1 (Version None)
Quarter: 2009Q2

REPORT INFORMATION
  Report Type: 
  Country: None (occurrence: None)
  Receive Date: 20090515
  Receipt Date: 20090504
  Transmission Date: 20091009
  Serious: Yes (Hospitalization)
  Sender: FDA-Public Use
  Company Number: FR-ELI_LILLY_AND_COMPANY-FR200901003166

PATIENT
  Age: 67 Year
  Sex: Female

DRUGS (4)
  1. CYMBALTA [Suspect]
     Dosage: 60 MG, DAILY (1/D)
     Route: 048
     Dates: start: 20080101, end: 20090101
  2. CYMBALTA [Suspect]
     Dosage: 60 MG, DAILY (1/D)
     Route: 048
     Dates: start: 20090101, end: 20090101
  3. LEXOMIL [Concomitant]
     Dosage: UNK, UNKNOWN
     Route: 048
  4. ATHYMIL [Concomitant]
     Dosage: UNK, UNKNOWN
     Route: 051

REACTIONS (2)
  - HOSPITALISATION [None]
  - VISUAL ACUITY REDUCED [None]
